FAERS Safety Report 9015776 (Version 2)
Quarter: 2013Q3

REPORT INFORMATION
  Report Type: Spontaneous
  Country: JP (occurrence: None)
  Receive Date: 20130102
  Receipt Date: 20130702
  Transmission Date: 20140515
  Serious: Yes (Other)
  Sender: FDA-Public Use
  Company Number: 2010JP003369

PATIENT
  Age: 43 Year
  Sex: Female
  Weight: 61 kg

DRUGS (45)
  1. PROGRAF (TACROLIMUS) CAPSULE [Suspect]
     Indication: LUPUS NEPHRITIS
     Dosage: 3 MG, UNKNOWN/D, ORAL
     Route: 048
     Dates: start: 20080313
  2. PREDNISOLONE [Suspect]
     Indication: LUPUS NEPHRITIS
     Route: 048
     Dates: end: 20080807
  3. FLOMOX [Suspect]
     Indication: TOOTH EXTRACTION
     Dosage: 300 MG, UNKNOWN/D/, ORAL
     Route: 048
     Dates: start: 20111013, end: 20111018
  4. ZITHROMAC [Suspect]
     Indication: TOOTH EXTRACTION
     Dosage: 2 G, UNKNOWN/D, ORAL
     Route: 048
     Dates: start: 20111013, end: 20111014
  5. LIPITOR [Suspect]
     Indication: HYPERLIPIDAEMIA
     Route: 048
     Dates: start: 20130124, end: 20130418
  6. PERSANTIN-L (DIPYRIDAMOLE) PER ORAL NOS ONGOING [Concomitant]
  7. ISODINE (POVIDONE-IODINE) MOUTHWASH [Concomitant]
  8. PARIET (RABEPRAZOLE SODIUM) PER ORAL NOS ONGOING [Concomitant]
  9. FOSAMAC (ALENDRONATE SODIUM) PER ORAL NOS [Concomitant]
  10. GLAKAY (MENATETRENONE) CAPSULE [Concomitant]
  11. PREMARIN (ESTROGENS CONJUGATED, MEDROGESTONE) PER ORAL NOS [Concomitant]
  12. MEVALOTIN (PRAVASTATIN SODIUM) PER ORAL NOS [Concomitant]
  13. MYSER (DIFLUPREDNATE) OINTMENT [Concomitant]
  14. BAKTAR (SULFAMETHOXAZOLE, TRIMETHOPRIM) PER ORAL NOS [Concomitant]
  15. JUVELA (TOCOPHERYL ACETATE) PER ORAL NOS [Concomitant]
  16. LUTORAL (CHLORMADINONE ACETATE) PER ORAL NOS [Concomitant]
  17. INCREMIN/00023544/(FERRIC PYROPHOSPHATE) SYRUP [Concomitant]
  18. RESTAMIN/00000401/(DIPHENHYDRAMINE) OINTMENT [Concomitant]
  19. PL GRAN. (CAFFEINE, PARACETAMOL, PROMETHAZINE METHYLENE DISALICYLATE, SALICYLAMIDE) GRANULE [Concomitant]
  20. COCARL [Suspect]
  21. BIOFERMIN R (STREPTOCOCCUS FAECALIS) POWDER [Concomitant]
  22. GASTER(FAMOTIDINE) [Concomitant]
  23. BAKTAR [Concomitant]
  24. ALFAROL [Concomitant]
  25. PERSANTIN-L [Concomitant]
  26. ISODINE [Concomitant]
  27. JUVELA [Concomitant]
  28. LUTORAL [Concomitant]
  29. PARIET [Concomitant]
  30. FOSAMAC [Concomitant]
  31. GLAKAY [Concomitant]
  32. PREMARIN [Concomitant]
  33. MEVALOTIN [Concomitant]
  34. MYSER [Concomitant]
  35. INCREMIN [Concomitant]
  36. RESTAMIN [Concomitant]
  37. COCARL [Concomitant]
  38. BIOFERMIN R [Concomitant]
  39. LAC-B [Concomitant]
  40. ONON [Concomitant]
  41. BUSCOPAN [Concomitant]
  42. PROPETO [Concomitant]
  43. EPADEL-S [Concomitant]
  44. EDIROL [Concomitant]
  45. LIPITOR [Suspect]
     Indication: HYPERLIPIDAEMIA
     Dosage: 2.5 MG/DAY. ORAL.

REACTIONS (15)
  - Nasopharyngitis [None]
  - Iron deficiency anaemia [None]
  - Oropharyngeal pain [None]
  - Dyspepsia [None]
  - Back pain [None]
  - Hypercholesterolaemia [None]
  - Eczema [None]
  - Pruritus [None]
  - Diarrhoea [None]
  - Back pain [None]
  - Enterocolitis viral [None]
  - Dental caries [None]
  - Intentional drug misuse [None]
  - Hyperlipidaemia [None]
  - Allergic cough [None]
